FAERS Safety Report 12522216 (Version 1)
Quarter: 2016Q3

REPORT INFORMATION
  Report Type: Spontaneous
  Country: PT (occurrence: PT)
  Receive Date: 20160701
  Receipt Date: 20160701
  Transmission Date: 20161109
  Serious: Yes (Hospitalization)
  Sender: FDA-Public Use
  Company Number: PT-FRESENIUS KABI-FK201604036

PATIENT
  Age: 18 Year
  Sex: Female

DRUGS (1)
  1. MAGNESIUM SULPHATE (NOT SPECIFIED) [Suspect]
     Active Substance: MAGNESIUM SULFATE
     Indication: ECLAMPSIA
     Route: 065

REACTIONS (3)
  - Caesarean section [None]
  - Posterior reversible encephalopathy syndrome [Recovered/Resolved]
  - Exposure during pregnancy [Recovered/Resolved]
